FAERS Safety Report 5758279-X (Version None)
Quarter: 2008Q2

REPORT INFORMATION
  Report Type: 
  Country: None (occurrence: None)
  Receive Date: 20080604
  Receipt Date: 20080526
  Transmission Date: 20081010
  Serious: Yes (Other)
  Sender: FDA-Public Use
  Company Number: DE-SOLVAY-00208002407

PATIENT
  Sex: Male

DRUGS (2)
  1. COVERSUM [Suspect]
     Indication: DRUG USE FOR UNKNOWN INDICATION
     Dosage: DAILY DOSE: 2 MILLIGRAM(S)
     Route: 048
     Dates: start: 19960101
  2. COVERSUM [Suspect]
     Dosage: DAILY DOSE: HALF OF A 4 MG TABLET
     Route: 048
     Dates: end: 20080201

REACTIONS (5)
  - CARDIAC FAILURE [None]
  - COUGH [None]
  - HERPES ZOSTER [None]
  - OEDEMA PERIPHERAL [None]
  - PULMONARY OEDEMA [None]
